FAERS Safety Report 6087002-7 (Version None)
Quarter: 2009Q1

REPORT INFORMATION
  Report Type: 
  Country: None (occurrence: None)
  Receive Date: 20090219
  Receipt Date: 20090211
  Transmission Date: 20090719
  Serious: Yes (Hospitalization)
  Sender: FDA-Public Use
  Company Number: 2009SP000428

PATIENT
  Age: 44 Year
  Sex: Male
  Weight: 71.7 kg

DRUGS (4)
  1. OMNARIS [Suspect]
     Indication: SINUSITIS
     Dosage: 100 UG; QD; NASAL
     Route: 045
     Dates: start: 20080901
  2. XOPENEX [Concomitant]
  3. ZYRTEC [Concomitant]
  4. PEPCID [Concomitant]

REACTIONS (9)
  - APHONIA [None]
  - CHEST PAIN [None]
  - DIZZINESS [None]
  - DYSPNOEA [None]
  - HYPERHIDROSIS [None]
  - MUSCLE FATIGUE [None]
  - NASAL CONGESTION [None]
  - OCULAR HYPERAEMIA [None]
  - TREMOR [None]
